FAERS Safety Report 9251081 (Version 1)
Quarter: 2013Q1

REPORT INFORMATION
  Report Type: Spontaneous
  Country: US (occurrence: None)
  Receive Date: 20130305
  Receipt Date: 20130305
  Transmission Date: 20140127
  Serious: Yes (Other)
  Sender: FDA-Public Use
  Company Number: 163-21880-12042255

PATIENT
  Age: 68 Year
  Sex: Female

DRUGS (1)
  1. REVLIMID (LENALIDOMIDE) [Suspect]
     Indication: PLASMA CELL MYELOMA
     Dates: start: 20110712, end: 20120412

REACTIONS (4)
  - Renal failure chronic [None]
  - White blood cell count decreased [None]
  - Haemoglobin decreased [None]
  - Paraesthesia [None]
